FAERS Safety Report 17717628 (Version 1)
Quarter: 2020Q2

REPORT INFORMATION
  Report Type: Spontaneous
  Country: US (occurrence: US)
  Receive Date: 20200427
  Receipt Date: 20200427
  Transmission Date: 20200714
  Serious: Yes (Life-Threatening, Hospitalization, Disabling)
  Sender: FDA-Public Use
  Company Number: None

PATIENT

DRUGS (1)
  1. LEVOFLOXACIN. [Suspect]
     Active Substance: LEVOFLOXACIN
     Indication: ARTHROPOD BITE
     Dosage: ?          QUANTITY:1 TABLET(S);?
     Route: 048
     Dates: start: 20190920, end: 20190924

REACTIONS (26)
  - Dizziness [None]
  - Arthralgia [None]
  - Confusional state [None]
  - Disturbance in attention [None]
  - Time perception altered [None]
  - Arthropathy [None]
  - Anxiety [None]
  - Paraesthesia [None]
  - Joint noise [None]
  - Feeling cold [None]
  - Panic attack [None]
  - Skin burning sensation [None]
  - Pain [None]
  - Gait disturbance [None]
  - Pain in extremity [None]
  - Chest pain [None]
  - Memory impairment [None]
  - Tendon pain [None]
  - Muscular weakness [None]
  - Nausea [None]
  - Insomnia [None]
  - Polyneuropathy [None]
  - Eye irritation [None]
  - Rash [None]
  - Hypoaesthesia [None]
  - Dyspnoea [None]

NARRATIVE: CASE EVENT DATE: 20190920
